FAERS Safety Report 7533017-9 (Version None)
Quarter: 2011Q2

REPORT INFORMATION
  Report Type: 
  Country: None (occurrence: None)
  Receive Date: 20110608
  Receipt Date: 20110603
  Transmission Date: 20111010
  Serious: Yes (Other)
  Sender: FDA-Public Use
  Company Number: US-PFIZER INC-2011085738

PATIENT
  Sex: Female

DRUGS (4)
  1. TRAZODONE [Concomitant]
     Indication: SLEEP DISORDER
     Dosage: UNK
  2. XANAX [Concomitant]
     Indication: ANXIETY
     Dosage: UNK
  3. LITHIUM [Concomitant]
     Indication: BIPOLAR DISORDER
     Dosage: UNK
  4. EFFEXOR XR [Suspect]
     Indication: DEPRESSION
     Dosage: 150 MG, DAILY
     Route: 048
     Dates: start: 20090501

REACTIONS (1)
  - SUICIDAL IDEATION [None]
